FAERS Safety Report 23250025 (Version 1)
Quarter: 2023Q4

REPORT INFORMATION
  Report Type: Other
  Country: IT (occurrence: IT)
  Receive Date: 20231201
  Receipt Date: 20231201
  Transmission Date: 20240110
  Serious: No
  Sender: FDA-Public Use
  Company Number: IT-Blueprint Medicines Corporation-LT-IT-2023-001942

PATIENT
  Age: 55 Year
  Sex: Female

DRUGS (3)
  1. AVAPRITINIB [Suspect]
     Active Substance: AVAPRITINIB
     Indication: Indolent systemic mastocytosis
     Route: 065
     Dates: start: 202103, end: 202105
  2. AVAPRITINIB [Suspect]
     Active Substance: AVAPRITINIB
     Route: 065
     Dates: start: 202107, end: 202108
  3. CLADRIBINE [Suspect]
     Active Substance: CLADRIBINE
     Indication: Indolent systemic mastocytosis
     Route: 058
     Dates: start: 202005

REACTIONS (8)
  - Diarrhoea [Recovered/Resolved]
  - Periorbital oedema [Unknown]
  - Oedema peripheral [Recovered/Resolved]
  - Hypomagnesaemia [Unknown]
  - Hypocalcaemia [Unknown]
  - Hypernatraemia [Unknown]
  - Hypokalaemia [Unknown]
  - Off label use [Unknown]

NARRATIVE: CASE EVENT DATE: 20210501
